FAERS Safety Report 8097249-6 (Version None)
Quarter: 2012Q1

REPORT INFORMATION
  Report Type: 
  Country: None (occurrence: None)
  Receive Date: 20120126
  Receipt Date: 20120112
  Transmission Date: 20120608
  Serious: Yes (Hospitalization, Disabling)
  Sender: FDA-Public Use
  Company Number: 2012P1003160

PATIENT
  Age: 72 Year
  Sex: Male

DRUGS (11)
  1. PEPCID [Suspect]
     Dosage: 20 MG;BID;PO
     Route: 048
     Dates: start: 20111006, end: 20111017
  2. METOPROLOL TARTRATE [Suspect]
     Dosage: 150 MG;BID;PO, 150 MG;BID;PO
     Route: 048
     Dates: start: 20111006, end: 20111017
  3. METOPROLOL TARTRATE [Suspect]
     Dosage: 150 MG;BID;PO, 150 MG;BID;PO
     Route: 048
     Dates: start: 20111021, end: 20111025
  4. NITROGLYCERIN [Suspect]
     Dosage: 500 MCG;;SL
     Route: 060
     Dates: start: 20111006, end: 20111017
  5. METFORMIN (NO PREF. NAME) [Suspect]
     Dosage: 250 MG;TID;PO
     Route: 048
     Dates: start: 20111006, end: 20111017
  6. MK-0431 OR PLACEBO (NO PREF. NAME) [Suspect]
  7. VASOTEC [Suspect]
     Dosage: 10 MG;BID;PO
     Route: 048
     Dates: start: 20111006, end: 20111017
  8. ASPIRIN [Suspect]
     Dosage: 80 MG;QD;PO, 80 MG;QW;PO
     Route: 048
     Dates: start: 20111021, end: 20111025
  9. ASPIRIN [Suspect]
     Dosage: 80 MG;QD;PO, 80 MG;QW;PO
     Route: 048
     Dates: start: 20111006, end: 20111017
  10. ZOCOR [Suspect]
     Dosage: 10 MG;HS;PO
     Route: 048
     Dates: start: 20111006, end: 20111017
  11. ISOSORBIDE MONONITRATE [Suspect]
     Dosage: 20 MG;BID;PO
     Route: 048
     Dates: start: 20111006, end: 20111017

REACTIONS (1)
  - CERVICAL CORD COMPRESSION [None]
